FAERS Safety Report 5326018-2 (Version None)
Quarter: 2007Q2

REPORT INFORMATION
  Report Type: 
  Country: None (occurrence: None)
  Receive Date: 20070516
  Receipt Date: 20070510
  Transmission Date: 20071010
  Serious: Yes (Death)
  Sender: FDA-Public Use
  Company Number: DK-NOVOPROD-263629

PATIENT

DRUGS (1)
  1. NOVOLOG MIX 70/30 [Suspect]
     Indication: DIABETES MELLITUS

REACTIONS (1)
  - SUDDEN DEATH [None]
